FAERS Safety Report 21397829 (Version 2)
Quarter: 2023Q1

REPORT INFORMATION
  Report Type: Report from Study
  Country: US (occurrence: US)
  Receive Date: 20220930
  Receipt Date: 20230206
  Transmission Date: 20230418
  Serious: Yes (Other)
  Sender: FDA-Public Use
  Company Number: US-ABBVIE-22K-163-4358823-00

PATIENT
  Sex: Female
  Weight: 66 kg

DRUGS (11)
  1. HUMIRA [Suspect]
     Active Substance: ADALIMUMAB
     Indication: Psoriatic arthropathy
     Route: 058
     Dates: start: 20220301, end: 20220330
  2. HUMIRA [Suspect]
     Active Substance: ADALIMUMAB
     Route: 058
     Dates: start: 20220330, end: 202301
  3. HUMIRA [Suspect]
     Active Substance: ADALIMUMAB
     Indication: Psoriatic arthropathy
     Dosage: CITRATE FREE
     Route: 058
     Dates: end: 2022
  4. HUMIRA [Suspect]
     Active Substance: ADALIMUMAB
     Dosage: CITRATE FREE
     Route: 058
     Dates: start: 2022
  5. PFIZER-BIONTECH COVID-19 VACCINE [Concomitant]
     Active Substance: TOZINAMERAN
     Indication: COVID-19 immunisation
     Dosage: FREQUENCY: ONE IN ONCE,?FIRST DOSE
     Route: 030
     Dates: start: 20210112, end: 20210112
  6. PFIZER-BIONTECH COVID-19 VACCINE [Concomitant]
     Active Substance: TOZINAMERAN
     Indication: COVID-19 immunisation
     Dosage: FREQUENCY: ONE IN ONCE,?SECOND DOSE
     Route: 030
     Dates: start: 20210129, end: 20210129
  7. PFIZER-BIONTECH COVID-19 VACCINE [Concomitant]
     Active Substance: TOZINAMERAN
     Indication: COVID-19 immunisation
     Dosage: FREQUENCY: ONE IN ONCE,?THIRD DOSE
     Route: 030
     Dates: start: 20210818, end: 20210818
  8. FOSAMAX [Concomitant]
     Active Substance: ALENDRONATE SODIUM
     Indication: Osteopenia
     Dosage: WEEKLY
     Route: 048
     Dates: start: 202009
  9. PROTONIX [Concomitant]
     Active Substance: PANTOPRAZOLE SODIUM
     Indication: Ulcer
     Dosage: DAILY
     Route: 048
     Dates: start: 201906
  10. BUDESONIDE [Concomitant]
     Active Substance: BUDESONIDE
     Indication: Colitis
     Dosage: DAILY
     Route: 048
     Dates: start: 202106
  11. LEVOTHYROXINE [Concomitant]
     Active Substance: LEVOTHYROXINE
     Indication: Radioactive iodine therapy
     Dosage: DAILY
     Route: 048
     Dates: start: 198906

REACTIONS (5)
  - Knee arthroplasty [Recovered/Resolved]
  - COVID-19 [Unknown]
  - Arthritis [Unknown]
  - Incision site complication [Unknown]
  - COVID-19 [Recovered/Resolved]

NARRATIVE: CASE EVENT DATE: 20220101
